FAERS Safety Report 20540749 (Version 3)
Quarter: 2022Q2

REPORT INFORMATION
  Report Type: Report from Study
  Country: CA (occurrence: CA)
  Receive Date: 20220302
  Receipt Date: 20220629
  Transmission Date: 20220721
  Serious: Yes (Other)
  Sender: FDA-Public Use
  Company Number: CA-JNJFOC-20210949827

PATIENT
  Age: 38 Year
  Sex: Female
  Weight: 74.5 kg

DRUGS (3)
  1. REMICADE [Suspect]
     Active Substance: INFLIXIMAB
     Indication: Colitis ulcerative
     Dosage: INFUSION RECEIVED ON 11/AUG/2021
     Route: 042
     Dates: start: 20200615
  2. BENADRYL [Suspect]
     Active Substance: DIPHENHYDRAMINE HYDROCHLORIDE
     Indication: Premedication
     Route: 042
     Dates: start: 20220615
  3. SODIUM CHLORIDE [Concomitant]
     Active Substance: SODIUM CHLORIDE
     Indication: Product used for unknown indication
     Route: 065

REACTIONS (15)
  - Eczema [Unknown]
  - Pruritus [Recovering/Resolving]
  - Infusion related reaction [Unknown]
  - Vomiting [Unknown]
  - Pain [Unknown]
  - Rash [Unknown]
  - Urticaria [Unknown]
  - Conjunctivitis [Unknown]
  - Paraesthesia [Recovered/Resolved]
  - Discomfort [Recovered/Resolved]
  - Gastrooesophageal reflux disease [Unknown]
  - Scratch [Recovered/Resolved]
  - Ocular hyperaemia [Recovered/Resolved]
  - Eye pruritus [Recovered/Resolved]
  - Tachycardia [Unknown]

NARRATIVE: CASE EVENT DATE: 20210924
